FAERS Safety Report 4733158-5 (Version None)
Quarter: 2005Q3

REPORT INFORMATION
  Report Type: 
  Country: None (occurrence: None)
  Receive Date: 20050803
  Receipt Date: 20050726
  Transmission Date: 20060218
  Serious: Yes (Other)
  Sender: FDA-Public Use
  Company Number: PHEH2005US08364

PATIENT
  Age: 44 Year
  Sex: Female

DRUGS (3)
  1. CLOZARIL [Suspect]
     Dosage: UNK, UNK
     Dates: start: 20050101
  2. DEPAKOTE [Concomitant]
  3. ZOLOFT [Concomitant]

REACTIONS (4)
  - CARDIOLIPIN ANTIBODY POSITIVE [None]
  - MYALGIA [None]
  - SYSTEMIC LUPUS ERYTHEMATOSUS [None]
  - TRANSIENT ISCHAEMIC ATTACK [None]
